FAERS Safety Report 4837001-5 (Version None)
Quarter: 2005Q4

REPORT INFORMATION
  Report Type: 
  Country: None (occurrence: None)
  Receive Date: 20051121
  Receipt Date: 20050823
  Transmission Date: 20060501
  Serious: Yes (Life-Threatening)
  Sender: FDA-Public Use
  Company Number: 805#9#2005-00056

PATIENT
  Age: 9 Day
  Sex: Female

DRUGS (13)
  1. ALPROSTADIL [Suspect]
     Indication: HEART DISEASE CONGENITAL
     Dosage: 1.50-1-- NG/KG/MIN IN SEVERAL DOSE TITRATION STEPS INTRAVENOUS DRIP
     Route: 041
     Dates: start: 20041220, end: 20050111
  2. DOPAMINE-HYDROCHLORIDE (DOPAMINE) [Concomitant]
  3. FUROSEMIDE [Concomitant]
  4. POTASSIUM-CANRENOATE (POTASSIUM CANRENOATE) [Concomitant]
  5. PHENOBARBITAL TAB [Concomitant]
  6. ULINASTATIN (URINASTATIN) [Concomitant]
  7. FREEZE-DRIED-CONC.-HUMAN-ANTI-THROMBIN-III [Concomitant]
  8. METHYLPREDNISOLONE [Concomitant]
  9. NAFAMOSTAT-MESILATE (NAFAMOSTAT MESILATE) [Concomitant]
  10. CEFAZOLIN-SODIUM-HYDRATE (CEFAZOLIN SODIUM) [Concomitant]
  11. DOBUTAMINE HCL [Concomitant]
  12. MORPHINE [Concomitant]
  13. PANCURONIUM BROMIDE [Concomitant]

REACTIONS (16)
  - BASE EXCESS INCREASED [None]
  - FLUID INTAKE REDUCED [None]
  - GASTRIC MUCOSAL HYPERTROPHY [None]
  - HEART RATE INCREASED [None]
  - METABOLIC ACIDOSIS [None]
  - NEONATAL DISORDER [None]
  - NEONATAL TACHYPNOEA [None]
  - OLIGURIA [None]
  - ORAL INTAKE REDUCED [None]
  - PO2 DECREASED [None]
  - RESPIRATORY RATE DECREASED [None]
  - RESPIRATORY RATE INCREASED [None]
  - SHOCK [None]
  - SKIN DISCOLOURATION [None]
  - VOMITING NEONATAL [None]
  - WEIGHT DECREASE NEONATAL [None]
